FAERS Safety Report 21777115 (Version 1)
Quarter: 2022Q4

REPORT INFORMATION
  Report Type: Spontaneous
  Country: US (occurrence: US)
  Receive Date: 20221226
  Receipt Date: 20221226
  Transmission Date: 20230112
  Serious: Yes (Other)
  Sender: FDA-Public Use
  Company Number: US-STERISCIENCE B.V.-2022-ST-000344

PATIENT
  Age: 58 Year
  Sex: Male

DRUGS (7)
  1. METOPROLOL [Suspect]
     Active Substance: METOPROLOL
     Indication: Atrial fibrillation
     Dosage: UNK
     Route: 065
  2. SOTALOL [Suspect]
     Active Substance: SOTALOL
     Indication: Atrial fibrillation
     Dosage: UNK
     Route: 065
  3. CARVEDILOL [Suspect]
     Active Substance: CARVEDILOL
     Indication: Atrial fibrillation
     Dosage: UNK
     Route: 065
  4. NOREPINEPHRINE [Concomitant]
     Active Substance: NOREPINEPHRINE
     Indication: Acute kidney injury
     Dosage: UNK
     Route: 065
  5. EPINEPHRINE [Concomitant]
     Active Substance: EPINEPHRINE
     Indication: Acute kidney injury
     Dosage: UNK
     Route: 065
  6. VASOPRESSIN [Concomitant]
     Active Substance: VASOPRESSIN
     Indication: Acute kidney injury
     Dosage: UNK
     Route: 065
  7. DOBUTAMINE [Concomitant]
     Active Substance: DOBUTAMINE HYDROCHLORIDE
     Indication: Acute kidney injury
     Dosage: UNK
     Route: 065

REACTIONS (2)
  - Renal injury [Unknown]
  - Tachycardia [Unknown]
